FAERS Safety Report 17169875 (Version 1)
Quarter: 2019Q4

REPORT INFORMATION
  Report Type: Spontaneous
  Country: IT (occurrence: IT)
  Receive Date: 20191218
  Receipt Date: 20191218
  Transmission Date: 20200122
  Serious: Yes (Hospitalization)
  Sender: FDA-Public Use
  Company Number: IT-BRACCO-2019IT06168

PATIENT
  Age: 51 Year
  Sex: Male

DRUGS (2)
  1. IOPAMIRO [Suspect]
     Active Substance: IOPAMIDOL
     Indication: ARTHROGRAM
     Dosage: 3 ML, SINGLE
     Dates: start: 20191107, end: 20191107
  2. GADOTERIC ACID [Concomitant]
     Active Substance: GADOTERATE MEGLUMINE
     Dosage: 12 ML
     Dates: start: 20191107, end: 20191107

REACTIONS (3)
  - Off label use [Not Recovered/Not Resolved]
  - Product deposit [Not Recovered/Not Resolved]
  - Arthritis [Not Recovered/Not Resolved]

NARRATIVE: CASE EVENT DATE: 20191107
